FAERS Safety Report 9813069 (Version 1)
Quarter: 2014Q1

REPORT INFORMATION
  Report Type: Spontaneous
  Country: FR (occurrence: None)
  Receive Date: 20140108
  Receipt Date: 20140108
  Transmission Date: 20141002
  Serious: Yes (Hospitalization)
  Sender: FDA-Public Use
  Company Number: 2013373486

PATIENT
  Age: 80 Year
  Sex: Female

DRUGS (7)
  1. FRAGMINE (DALTEPARIN SODIUM) SOLUTION FOR INJECTION [Suspect]
     Dosage: 1 DF, 5000 IU ANTI XA/0.2 ML, 1X/1DAY
     Route: 058
  2. FUNGIZONE [Suspect]
     Route: 048
     Dates: start: 20130314, end: 20130317
  3. COVERAM [Suspect]
     Dosage: 1 DF 10 MG/5 MG, 1X/DAY
     Route: 048
  4. TOPALGIC LP [Suspect]
     Route: 048
  5. INEXIUM [Suspect]
     Route: 048
  6. DAONIL [Suspect]
  7. METFORMIN [Suspect]
     Route: 048

REACTIONS (7)
  - Hypokalaemia [None]
  - Electrocardiogram T wave amplitude decreased [None]
  - Blood creatinine increased [None]
  - Peritonitis [None]
  - Post procedural complication [None]
  - Fungal infection [None]
  - Duodenal ulcer perforation [None]
